FAERS Safety Report 6599769-X (Version None)
Quarter: 2010Q1

REPORT INFORMATION
  Report Type: 
  Country: None (occurrence: None)
  Receive Date: 20100224
  Receipt Date: 20100216
  Transmission Date: 20100710
  Serious: Yes (Disabling)
  Sender: FDA-Public Use
  Company Number: PHHO2010JP02737

PATIENT
  Sex: Male
  Weight: 55 kg

DRUGS (8)
  1. CERTICAN [Suspect]
     Indication: RENAL TRANSPLANT
     Dosage: UNK
     Route: 048
     Dates: start: 20080828
  2. NEORAL [Suspect]
     Indication: RENAL TRANSPLANT
     Dosage: UNK
     Route: 048
  3. NEORAL [Suspect]
     Dosage: 40 MG, BID
     Route: 048
     Dates: start: 20090915
  4. MEDROL [Suspect]
     Indication: RENAL TRANSPLANT
     Dosage: 4 MG / DAY
     Route: 048
     Dates: start: 20080924
  5. BLOPRESS [Concomitant]
     Indication: RENAL HYPERTENSION
  6. PROTECADIN [Concomitant]
     Indication: PROPHYLAXIS AGAINST GASTROINTESTINAL ULCER
  7. LIPITOR [Concomitant]
     Indication: HYPERLIPIDAEMIA
  8. CONIEL [Concomitant]
     Indication: RENAL HYPERTENSION

REACTIONS (1)
  - AZOOSPERMIA [None]
